FAERS Safety Report 9352491 (Version 2)
Quarter: 2013Q3

REPORT INFORMATION
  Report Type: Spontaneous
  Country: US (occurrence: US)
  Receive Date: 20130617
  Receipt Date: 20130816
  Transmission Date: 20140515
  Serious: No
  Sender: FDA-Public Use
  Company Number: US-009507513-1306USA006624

PATIENT
  Age: 17 Year
  Sex: Female

DRUGS (3)
  1. NEXPLANON [Suspect]
     Indication: CONTRACEPTION
     Dosage: 1 ROD, UNK
     Route: 059
     Dates: start: 20130523, end: 20130610
  2. NEXPLANON [Suspect]
     Dosage: 1 DF, UNK
     Route: 059
     Dates: start: 20130610
  3. IBUPROFEN [Concomitant]

REACTIONS (5)
  - Discomfort [Recovering/Resolving]
  - Implant site infection [Recovering/Resolving]
  - Device difficult to use [Recovering/Resolving]
  - Complication of device insertion [Recovering/Resolving]
  - Device deployment issue [Recovering/Resolving]
